FAERS Safety Report 4311336-7 (Version None)
Quarter: 2004Q1

REPORT INFORMATION
  Report Type: 
  Country: None (occurrence: None)
  Receive Date: 20040302
  Receipt Date: 20030318
  Transmission Date: 20041129
  Serious: Yes (Hospitalization)
  Sender: FDA-Public Use
  Company Number: BDI-004903

PATIENT
  Age: 54 Year
  Sex: Male

DRUGS (4)
  1. ISOVUE-300 [Suspect]
     Indication: BACK PAIN
     Dosage: 15 ML ONCE IV
     Dates: start: 20030218, end: 20030218
  2. ISOVUE-300 [Suspect]
     Indication: COMPUTERISED TOMOGRAM
     Dosage: 15 ML ONCE IV
     Dates: start: 20030218, end: 20030218
  3. ISOVUE-300 [Suspect]
     Indication: SPINAL MYELOGRAM
     Dosage: 15 ML ONCE IV
     Dates: start: 20030218, end: 20030218
  4. PROTONIX [Concomitant]

REACTIONS (2)
  - MENINGITIS BACTERIAL [None]
  - MUSCLE CRAMP [None]
